FAERS Safety Report 7774355-4 (Version None)
Quarter: 2011Q3

REPORT INFORMATION
  Report Type: 
  Country: None (occurrence: None)
  Receive Date: 20110923
  Receipt Date: 20110915
  Transmission Date: 20111222
  Serious: Yes (Other)
  Sender: FDA-Public Use
  Company Number: BR-SANOFI-AVENTIS-2011SA060489

PATIENT
  Sex: Female
  Weight: 70 kg

DRUGS (4)
  1. HUMALOG [Concomitant]
     Indication: TYPE 2 DIABETES MELLITUS
     Route: 058
  2. LANTUS [Suspect]
     Indication: TYPE 2 DIABETES MELLITUS
     Route: 058
  3. METFORMIN HCL [Concomitant]
     Indication: TYPE 2 DIABETES MELLITUS
     Route: 048
  4. INSULIN [Concomitant]
     Dosage: IT WAS REPORTED THAT THE PATIENT BEGAN THERAPY WITH THE CLICK START ON 14-SEP-2011.

REACTIONS (2)
  - HAEMATOMA [None]
  - BREAST CANCER [None]
